FAERS Safety Report 26073836 (Version 1)
Quarter: 2025Q4

REPORT INFORMATION
  Report Type: Spontaneous
  Country: GB (occurrence: GB)
  Receive Date: 20251121
  Receipt Date: 20251121
  Transmission Date: 20260117
  Serious: Yes (Other)
  Sender: TEVA
  Company Number: None

PATIENT
  Age: 76 Year
  Sex: Female
  Weight: 55 kg

DRUGS (1)
  1. BACLOFEN [Suspect]
     Active Substance: BACLOFEN
     Indication: Adverse drug reaction
     Dosage: 10MG
     Dates: start: 20251117, end: 20251120

REACTIONS (2)
  - Bladder cancer [Recovering/Resolving]
  - Sciatica [Recovering/Resolving]

NARRATIVE: CASE EVENT DATE: 20251117
